FAERS Safety Report 4663954-4 (Version None)
Quarter: 2005Q2

REPORT INFORMATION
  Report Type: 
  Country: None (occurrence: None)
  Receive Date: 20050428
  Receipt Date: 20040714
  Transmission Date: 20051028
  Serious: Yes (Hospitalization)
  Sender: FDA-Public Use
  Company Number: US-SHR-04-024548

PATIENT
  Age: 76 Year
  Sex: Male
  Weight: 96.1 kg

DRUGS (4)
  1. LEUKINE [Suspect]
     Indication: RENAL CELL CARCINOMA STAGE UNSPECIFIED
     Dosage: 250 UG/M2, 1X/DAY, SUBCUTANEOUS
     Route: 058
     Dates: start: 20040413
  2. DEXAMETHASONE [Suspect]
     Indication: RENAL CELL CARCINOMA STAGE UNSPECIFIED
     Dosage: 12 MG, 2X/DAY ORAL
     Route: 048
     Dates: start: 20040415
  3. LORTAB [Concomitant]
  4. LAXATIVES [Concomitant]

REACTIONS (1)
  - THROMBOSIS [None]
